FAERS Safety Report 25528737 (Version 1)
Quarter: 2025Q3

REPORT INFORMATION
  Report Type: Spontaneous
  Country: US (occurrence: US)
  Receive Date: 20250708
  Receipt Date: 20250708
  Transmission Date: 20251021
  Serious: Yes (Other)
  Sender: CSL BEHRING
  Company Number: US-BEH-2025211033

PATIENT
  Sex: Female

DRUGS (14)
  1. HAEGARDA [Suspect]
     Active Substance: HUMAN C1-ESTERASE INHIBITOR
     Indication: Hereditary angioedema
     Dosage: 6500 IU, BIW
     Route: 058
  2. HAEGARDA [Suspect]
     Active Substance: HUMAN C1-ESTERASE INHIBITOR
     Indication: Prophylaxis
  3. ADDERALL [Concomitant]
     Active Substance: AMPHETAMINE ASPARTATE\AMPHETAMINE SULFATE\DEXTROAMPHETAMINE SACCHARATE\DEXTROAMPHETAMINE SULFATE
  4. ARIPIPRAZOLE [Concomitant]
     Active Substance: ARIPIPRAZOLE
  5. BUSPIRONE [Concomitant]
     Active Substance: BUSPIRONE HYDROCHLORIDE
  6. ELIQUIS [Concomitant]
     Active Substance: APIXABAN
  7. EPINEPHRINE [Concomitant]
     Active Substance: EPINEPHRINE
  8. FAMOTIDINE [Concomitant]
     Active Substance: FAMOTIDINE
  9. FOCALIN [Concomitant]
     Active Substance: DEXMETHYLPHENIDATE HYDROCHLORIDE
  10. ICATIBANT [Concomitant]
     Active Substance: ICATIBANT ACETATE
  11. LURASIDONE [Concomitant]
     Active Substance: LURASIDONE
  12. ROPINIROLE [Concomitant]
     Active Substance: ROPINIROLE
  13. TRAZODONE [Concomitant]
     Active Substance: TRAZODONE HYDROCHLORIDE
  14. WEGOVY [Concomitant]
     Active Substance: SEMAGLUTIDE

REACTIONS (2)
  - Hereditary angioedema [Recovered/Resolved]
  - Injection site erythema [Recovered/Resolved]
